FAERS Safety Report 6154851-6 (Version None)
Quarter: 2009Q2

REPORT INFORMATION
  Report Type: 
  Country: None (occurrence: None)
  Receive Date: 20090414
  Receipt Date: 20090402
  Transmission Date: 20091009
  Serious: Yes (Hospitalization, Other)
  Sender: FDA-Public Use
  Company Number: US-PFIZER INC-2008151766

PATIENT
  Sex: Female

DRUGS (36)
  1. DEPO-PROVERA [Suspect]
     Indication: MENOPAUSAL SYMPTOMS
     Dosage: 250 MG, MONTHLY
     Route: 030
     Dates: start: 19900101
  2. DEPO-PROVERA [Suspect]
     Dosage: UNK, 250 MG
     Route: 030
     Dates: start: 19960913
  3. CLIMARA [Suspect]
     Indication: MENOPAUSAL SYMPTOMS
     Dosage: UNK
     Route: 062
     Dates: start: 19951006, end: 19970207
  4. ESTRADERM [Suspect]
     Indication: MENOPAUSAL SYMPTOMS
     Dosage: UNK
     Route: 062
     Dates: end: 19951006
  5. PREMPRO [Suspect]
     Indication: MENOPAUSAL SYMPTOMS
     Dosage: UNK, 2.5 MG
     Route: 048
     Dates: start: 19970207, end: 20000101
  6. PREMPRO [Suspect]
     Dosage: UNK
     Route: 048
     Dates: start: 19990628
  7. CYCRIN [Suspect]
     Indication: MENOPAUSAL SYMPTOMS
     Dosage: 5 MG, 1X/DAY
     Dates: start: 19951006, end: 19970207
  8. CYCRIN [Suspect]
     Indication: HORMONE REPLACEMENT THERAPY
  9. PROGESTERONE [Suspect]
     Dosage: 5 MG
  10. PAXIL [Concomitant]
     Indication: DEPRESSION
     Dosage: 30 MG
     Route: 048
     Dates: start: 19960101
  11. PAXIL [Concomitant]
     Indication: ANXIETY
     Dosage: 40 MG, UNK
     Dates: start: 20070601
  12. VIOXX [Concomitant]
     Indication: OSTEOARTHRITIS
     Dosage: 25 MG, 1X/DAY
     Route: 048
     Dates: start: 19900101, end: 19950101
  13. VIOXX [Concomitant]
     Dosage: 25 MG, UNK
     Dates: start: 19990101
  14. EXCEDRIN (MIGRAINE) [Concomitant]
     Indication: MIGRAINE
  15. BEXTRA [Concomitant]
     Indication: OSTEOARTHRITIS
     Dosage: UNK
  16. BONIVA [Concomitant]
     Indication: OSTEOPENIA
     Dosage: UNK
     Dates: start: 20050601
  17. HYDROCHLOROTHIAZIDE [Concomitant]
     Indication: HYPERTENSION
     Dosage: 12.5 MG, UNK
     Route: 048
     Dates: start: 20050601, end: 20070101
  18. HYDROCHLOROTHIAZIDE [Concomitant]
     Dosage: UNK
     Dates: start: 20080601
  19. PROVERA [Concomitant]
     Dosage: UNK
     Dates: start: 19930101, end: 19990101
  20. ADVIL [Concomitant]
     Indication: MIGRAINE
     Dosage: 12 DF, UNK
     Route: 048
     Dates: start: 19930101, end: 19980101
  21. ADVIL [Concomitant]
     Indication: OSTEOARTHRITIS
     Dosage: 3200 MG, UNK
     Dates: start: 19980101
  22. TYLENOL [Concomitant]
     Indication: OSTEOARTHRITIS
     Dosage: UNK
     Dates: start: 19960101
  23. ELIMITE [Concomitant]
     Indication: ACARODERMATITIS
     Dosage: UNK
     Route: 061
     Dates: start: 19980101
  24. RELAFEN [Concomitant]
     Indication: OSTEOARTHRITIS
  25. RELAFEN [Concomitant]
     Indication: ARTHRALGIA
  26. DAYPRO [Concomitant]
     Indication: OSTEOARTHRITIS
     Dosage: 1200 MG, UNK
     Route: 048
     Dates: start: 19990101
  27. ALEVE [Concomitant]
     Indication: OSTEOARTHRITIS
     Dosage: UNK
     Dates: start: 20050101
  28. CELECOXIB [Concomitant]
     Indication: OSTEOARTHRITIS
     Dosage: UNK
     Dates: start: 20050101
  29. FAMOTIDINE [Concomitant]
     Dosage: UNK
     Dates: start: 20060101
  30. CAPOTEN [Concomitant]
     Indication: HYPERTENSION
     Dosage: 1 DF, 2X/DAY
     Dates: start: 20050224
  31. FOSAMAX [Concomitant]
     Indication: OSTEOPENIA
     Dosage: 70 MG, UNK
     Dates: start: 20050201
  32. VITAMIN D [Concomitant]
     Indication: OSTEOPENIA
     Dosage: 800 MG, UNK
     Dates: start: 20090101
  33. ASCORBIC ACID [Concomitant]
     Dosage: UNK
  34. VITAMIN E [Concomitant]
     Dosage: UNK
  35. DEPO-PROVERA [Concomitant]
     Indication: MENSTRUATION IRREGULAR
     Route: 030
  36. ORAL CONTRACEPTIVE NOS [Concomitant]
     Indication: CONTRACEPTION
     Dosage: UNK
     Dates: start: 19650101, end: 19690101

REACTIONS (11)
  - ASTHENIA [None]
  - BALANCE DISORDER [None]
  - BLOOD PRESSURE INCREASED [None]
  - BONE PAIN [None]
  - BREAST CANCER [None]
  - BREAST CANCER FEMALE [None]
  - BREAST MASS [None]
  - ENDOMETRIAL HYPERTROPHY [None]
  - FIBROCYSTIC BREAST DISEASE [None]
  - HOT FLUSH [None]
  - VAGINAL HAEMORRHAGE [None]
